FAERS Safety Report 8916560 (Version 1)
Quarter: 2012Q4

REPORT INFORMATION
  Report Type: 
  Country: CO (occurrence: CO)
  Receive Date: 20121120
  Receipt Date: 20121120
  Transmission Date: 20130627
  Serious: Yes (Other)
  Sender: FDA-Public Use
  Company Number: CO-PFIZER INC-2012287792

PATIENT
  Age: 16 Year
  Sex: Male

DRUGS (4)
  1. GENOTROPIN [Suspect]
     Indication: SHORT STATURE
     Dosage: 1.2 mg, 1x/day
     Route: 058
     Dates: start: 2010, end: 20120518
  2. GENOTROPIN [Suspect]
     Indication: SKELETAL SURVEY ABNORMAL
  3. OMEGA 3 [Concomitant]
     Dosage: UNK
  4. ALOES [Concomitant]
     Dosage: UNK

REACTIONS (3)
  - Mental retardation [Not Recovered/Not Resolved]
  - Memory impairment [Not Recovered/Not Resolved]
  - Speech disorder [Unknown]
